FAERS Safety Report 6651620-5 (Version None)
Quarter: 2010Q1

REPORT INFORMATION
  Report Type: 
  Country: None (occurrence: None)
  Receive Date: 20100309
  Receipt Date: 20091203
  Transmission Date: 20100710
  Serious: No
  Sender: FDA-Public Use
  Company Number: 2009SP039725

PATIENT
  Age: 46 Year
  Sex: Female

DRUGS (4)
  1. SAPHRIS [Suspect]
     Indication: PARANOIA
     Dosage: 10 MG;BID;SL; 2.5 MG;BID;
     Dates: start: 20091118
  2. SAPHRIS [Suspect]
     Indication: PARANOIA
     Dosage: 10 MG;BID;SL; 2.5 MG;BID;
     Dates: start: 20091201
  3. LEXAPRO (CON.) [Concomitant]
  4. WELLBUTRIN XL (CON.) [Concomitant]

REACTIONS (5)
  - CHEST DISCOMFORT [None]
  - CHOKING SENSATION [None]
  - MUSCLE TIGHTNESS [None]
  - VOMITING [None]
  - WRONG TECHNIQUE IN DRUG USAGE PROCESS [None]
